FAERS Safety Report 9791725 (Version 1)
Quarter: 2014Q1

REPORT INFORMATION
  Report Type: Spontaneous
  Country: US (occurrence: US)
  Receive Date: 20140102
  Receipt Date: 20140102
  Transmission Date: 20141002
  Serious: Yes (Hospitalization)
  Sender: FDA-Public Use
  Company Number: US-ACCORD-021108

PATIENT
  Age: 64 Year
  Sex: Male

DRUGS (13)
  1. CLOPIDOGREL [Suspect]
     Indication: PRODUCT USED FOR UNKNOWN INDICATION
     Dosage: DOSE WAS TEMPORARY INCREASED TO 150 MG DAILY
  2. ASPIRIN [Suspect]
     Indication: PRODUCT USED FOR UNKNOWN INDICATION
  3. ESOMEPRAZOLE [Interacting]
     Indication: PRODUCT USED FOR UNKNOWN INDICATION
  4. ISONIAZIDE [Interacting]
     Indication: PRODUCT USED FOR UNKNOWN INDICATION
  5. RITONAVIR [Interacting]
     Indication: PRODUCT USED FOR UNKNOWN INDICATION
  6. EMTRICITABINE W/TENOFOVIR [Concomitant]
  7. SERTRALINE [Concomitant]
  8. DARUNAVIR [Concomitant]
  9. TAMSULOSIN [Concomitant]
  10. VALSARTAN [Concomitant]
  11. PYRIDOXINE [Concomitant]
  12. CARVEDILOL [Concomitant]
  13. ROSUVASTATIN [Concomitant]

REACTIONS (2)
  - Inhibitory drug interaction [Unknown]
  - No therapeutic response [Unknown]
